FAERS Safety Report 8706948 (Version 2)
Quarter: 2013Q4

REPORT INFORMATION
  Report Type: Spontaneous
  Country: CA (occurrence: CA)
  Receive Date: 20120803
  Receipt Date: 20131105
  Transmission Date: 20140711
  Serious: Yes (Life-Threatening, Disabling)
  Sender: FDA-Public Use
  Company Number: CA-009507513-2008-185294-NL

PATIENT
  Age: 30 Year
  Sex: Female
  Weight: 59 kg

DRUGS (2)
  1. MARVELON [Suspect]
     Indication: PRODUCT USED FOR UNKNOWN INDICATION
     Dosage: DOSE TEXT: 25 MG ESTROGEN, CONTINUING: NO, FREQUENCY: QD
     Route: 048
     Dates: start: 20061101, end: 20070810
  2. ATOVAQUONE (+) CHLORGUANIDE HYDROCHLORIDE [Concomitant]
     Indication: MALARIA PROPHYLAXIS
     Dosage: UNK DF, UNK

REACTIONS (3)
  - Thrombophlebitis [Unknown]
  - Embolism [Unknown]
  - Mobility decreased [Unknown]
